FAERS Safety Report 12841610 (Version 1)
Quarter: 2016Q4

REPORT INFORMATION
  Report Type: Not Available
  Country: US (occurrence: US)
  Receive Date: 20161012
  Receipt Date: 20161012
  Transmission Date: 20170207
  Serious: No
  Sender: FDA-Public Use
  Company Number: US-ANIPHARMA-2016-US-001849

PATIENT
  Age: 59 Year
  Sex: Female

DRUGS (1)
  1. ERYTHROMYCIN STEARATE (NON-SPECIFIC) [Suspect]
     Active Substance: ERYTHROMYCIN STEARATE

REACTIONS (1)
  - Hypersensitivity [Unknown]
